FAERS Safety Report 20944910 (Version 1)
Quarter: 2022Q2

REPORT INFORMATION
  Report Type: Spontaneous
  Country: US (occurrence: US)
  Receive Date: 20220610
  Receipt Date: 20220610
  Transmission Date: 20220720
  Serious: Yes (Hospitalization)
  Sender: FDA-Public Use
  Company Number: US-MYLANLABS-2022M1043250

PATIENT
  Age: 66 Year
  Sex: Male

DRUGS (6)
  1. ADENOSINE [Suspect]
     Active Substance: ADENOSINE
     Indication: Tachycardia
     Dosage: 6 MILLIGRAM (ESCALATING DOSES OF 6MG, 9MG AND 27MG)
     Route: 042
  2. ADENOSINE [Suspect]
     Active Substance: ADENOSINE
     Dosage: 9 MILLIGRAM (ESCALATING DOSES OF 6MG, 9MG AND 27MG)
     Route: 042
  3. ADENOSINE [Suspect]
     Active Substance: ADENOSINE
     Dosage: 27 MILLIGRAM (ESCALATING DOSES OF 6MG, 9MG AND 27MG)
     Route: 042
  4. METOPROLOL [Suspect]
     Active Substance: METOPROLOL
     Indication: Tachycardia
     Dosage: UNK
     Route: 042
  5. FLECAINIDE [Suspect]
     Active Substance: FLECAINIDE
     Indication: Tachycardia
     Dosage: 300 MILLIGRAM
     Route: 048
  6. DILTIAZEM [Concomitant]
     Active Substance: DILTIAZEM
     Indication: Tachycardia
     Dosage: UNK
     Route: 042

REACTIONS (1)
  - Treatment failure [Unknown]
